FAERS Safety Report 22046708 (Version 1)
Quarter: 2023Q1

REPORT INFORMATION
  Report Type: Spontaneous
  Country: GR (occurrence: GR)
  Receive Date: 20230228
  Receipt Date: 20230228
  Transmission Date: 20230418
  Serious: No
  Sender: FDA-Public Use
  Company Number: GR-BEH-2023155296

PATIENT
  Age: 86 Year
  Sex: Male

DRUGS (1)
  1. .ALPHA.1-PROTEINASE INHIBITOR HUMAN [Suspect]
     Active Substance: .ALPHA.1-PROTEINASE INHIBITOR HUMAN
     Indication: Emphysema
     Route: 065

REACTIONS (2)
  - Emphysema [Fatal]
  - Chronic obstructive pulmonary disease [Fatal]
